FAERS Safety Report 21600017 (Version 1)
Quarter: 2022Q4

REPORT INFORMATION
  Report Type: Spontaneous
  Country: GB (occurrence: GB)
  Receive Date: 20221116
  Receipt Date: 20221116
  Transmission Date: 20230113
  Serious: Yes (Hospitalization, Disabling, Other)
  Sender: FDA-Public Use
  Company Number: GB-MHRA-TPP39996207C969232YC1666964472355

PATIENT
  Age: 39 Year
  Sex: Male
  Weight: 80 kg

DRUGS (15)
  1. ARIPIPRAZOLE [Suspect]
     Active Substance: ARIPIPRAZOLE
     Indication: Product used for unknown indication
     Dosage: 5 MILLIGRAM, ONCE A DAY
     Route: 065
     Dates: start: 20221021
  2. CLINDAMYCIN [Concomitant]
     Active Substance: CLINDAMYCIN
     Indication: Product used for unknown indication
     Dosage: UNK, AS DIRECTED
     Route: 065
     Dates: start: 20201029
  3. COLCHICINE [Concomitant]
     Active Substance: COLCHICINE
     Indication: Product used for unknown indication
     Dosage: 1 DOSAGE FORM, TWO TIMES A DAY
     Route: 065
     Dates: start: 20220305
  4. DIAZEPAM [Concomitant]
     Active Substance: DIAZEPAM
     Indication: Product used for unknown indication
     Dosage: 1 DOSAGE FORM, ONCE A DAY (TAKE ONE OR TWO NIGHT)
     Route: 065
     Dates: start: 20221021
  5. DULOXETINE [Concomitant]
     Active Substance: DULOXETINE
     Indication: Product used for unknown indication
     Dosage: 1 DOSAGE FORM, ONCE A DAY
     Route: 065
     Dates: start: 20220512
  6. EPIPEN [Concomitant]
     Active Substance: EPINEPHRINE
     Indication: Product used for unknown indication
     Dosage: UNK, AS DIRECTED
     Route: 065
     Dates: start: 20221027
  7. ETORICOXIB [Concomitant]
     Active Substance: ETORICOXIB
     Indication: Pain
     Dosage: 1 DOSAGE FORM, ONCE A DAY
     Route: 065
     Dates: start: 20220616
  8. BETAMETHASONE VALERATE\FUSIDIC ACID [Concomitant]
     Active Substance: BETAMETHASONE VALERATE\FUSIDIC ACID
     Indication: Product used for unknown indication
     Dosage: 1 DOSAGE FORM, TWO TIMES A DAY
     Route: 065
     Dates: start: 20220908
  9. LORAZEPAM [Concomitant]
     Active Substance: LORAZEPAM
     Indication: Product used for unknown indication
     Dosage: 1 DOSAGE FORM (AS NECESSARY, TAKE ONE OR TWO AS NEEDED MAX TO BE TAKEN THREE...)
     Route: 065
     Dates: start: 20221027
  10. MIRTAZAPINE [Concomitant]
     Active Substance: MIRTAZAPINE
     Indication: Product used for unknown indication
     Dosage: 1 DOSAGE FORM, ONCE A DAY
     Route: 065
     Dates: start: 20221021
  11. OMEPRAZOLE [Concomitant]
     Active Substance: OMEPRAZOLE
     Indication: Product used for unknown indication
     Dosage: 1 DOSAGE FORM, TWO TIMES A DAY
     Route: 065
     Dates: start: 20220407
  12. MORPHINE SULFATE [Concomitant]
     Active Substance: MORPHINE SULFATE
     Indication: Pain
     Dosage: 5 MILLILITER (AS NECESSARY(
     Route: 065
     Dates: start: 20220428
  13. PREGABALIN [Concomitant]
     Active Substance: PREGABALIN
     Indication: Product used for unknown indication
     Dosage: 2 DOSAGE FORM, TWO TIMES A DAY
     Route: 065
     Dates: start: 20220305
  14. PROCYCLIDINE [Concomitant]
     Active Substance: PROCYCLIDINE
     Indication: Product used for unknown indication
     Dosage: 1 DOSAGE FORM, 3 TIMES A DAY
     Route: 065
     Dates: start: 20221027
  15. MORPHINE SULFATE [Concomitant]
     Active Substance: MORPHINE SULFATE
     Indication: Pain
     Dosage: 1 DOSAGE FORM (AS NECESSARY)
     Route: 065
     Dates: start: 20220609

REACTIONS (1)
  - Dystonia [Recovered/Resolved]

NARRATIVE: CASE EVENT DATE: 20221025
